FAERS Safety Report 8520199-5 (Version None)
Quarter: 2012Q3

REPORT INFORMATION
  Report Type: 
  Country: None (occurrence: None)
  Receive Date: 20120709
  Receipt Date: 20120623
  Transmission Date: 20120928
  Serious: Yes (Hospitalization)
  Sender: FDA-Public Use
  Company Number: 2012AP001952

PATIENT
  Age: 32 Year
  Sex: Female

DRUGS (4)
  1. ALBUTEROL [Suspect]
     Indication: ASTHMA
     Dosage: PRN;INH
     Route: 055
  2. TERBUTALINE [Suspect]
     Indication: ASTHMA
     Dosage: 0.25 MG;BID;SC
     Route: 058
  3. MONTELUKAST [Suspect]
     Indication: ASTHMA
     Dosage: 10 MG;QD;
  4. FLUTICASONE PROPIONATE/SALMETEROL [Suspect]
     Indication: ASTHMA
     Dosage: ; INH
     Route: 055

REACTIONS (7)
  - ASTHMA [None]
  - CONDITION AGGRAVATED [None]
  - BLOOD PRESSURE SYSTOLIC INCREASED [None]
  - BLOOD PRESSURE DIASTOLIC DECREASED [None]
  - LACTIC ACIDOSIS [None]
  - BLOOD GLUCOSE INCREASED [None]
  - RESPIRATORY DISTRESS [None]
